FAERS Safety Report 13880315 (Version 2)
Quarter: 2017Q3

REPORT INFORMATION
  Report Type: Report from Study
  Country: US (occurrence: US)
  Receive Date: 20170818
  Receipt Date: 20170818
  Transmission Date: 20171127
  Serious: No
  Sender: FDA-Public Use
  Company Number: PHEH2016US034438

PATIENT

DRUGS (1)
  1. SIMBRINZA [Suspect]
     Active Substance: BRIMONIDINE TARTRATE\BRINZOLAMIDE
     Indication: PRODUCT USED FOR UNKNOWN INDICATION
     Route: 065

REACTIONS (6)
  - Eye pain [Unknown]
  - Intraocular pressure fluctuation [Unknown]
  - Ocular hyperaemia [Unknown]
  - Malabsorption from application site [Unknown]
  - Eye allergy [Unknown]
  - Ocular discomfort [Unknown]
